FAERS Safety Report 9885689 (Version 1)
Quarter: 2014Q1

REPORT INFORMATION
  Report Type: Not Available
  Country: GB (occurrence: GB)
  Receive Date: 20140210
  Receipt Date: 20140210
  Transmission Date: 20141002
  Serious: Yes (Other)
  Sender: FDA-Public Use
  Company Number: GB-IAC JAPAN XML-GBR-2014-0016993

PATIENT
  Age: 44 Year
  Sex: Female
  Weight: 70 kg

DRUGS (2)
  1. BUTRANS 5MG TRANSDERMAL PATCH [Suspect]
     Indication: BACK PAIN
     Dosage: 5 MCG, Q1H
     Route: 062
     Dates: start: 2011, end: 20130418
  2. DICLOFENAC SODIUM [Concomitant]
     Indication: BACK PAIN
     Route: 061

REACTIONS (1)
  - Psychotic disorder [Recovered/Resolved]
